FAERS Safety Report 16123064 (Version 2)
Quarter: 2019Q2

REPORT INFORMATION
  Report Type: Spontaneous
  Country: US (occurrence: US)
  Receive Date: 20190327
  Receipt Date: 20190404
  Transmission Date: 20190711
  Serious: Yes (Life-Threatening, Other)
  Sender: FDA-Public Use
  Company Number: US-009507513-1903USA008602

PATIENT
  Age: 59 Year
  Sex: Female

DRUGS (1)
  1. JANUMET XR [Suspect]
     Active Substance: METFORMIN HYDROCHLORIDE\SITAGLIPTIN PHOSPHATE
     Indication: LATENT AUTOIMMUNE DIABETES IN ADULTS
     Dosage: UNK
     Route: 048
     Dates: start: 2012, end: 2019

REACTIONS (5)
  - Apparent death [Unknown]
  - Pancreatitis [Recovered/Resolved]
  - Food poisoning [Unknown]
  - Product use in unapproved indication [Unknown]
  - Hepatic enzyme abnormal [Recovered/Resolved]

NARRATIVE: CASE EVENT DATE: 2012
